FAERS Safety Report 9000006 (Version 3)
Quarter: 2014Q1

REPORT INFORMATION
  Report Type: Spontaneous
  Country: US (occurrence: US)
  Receive Date: 20130102
  Receipt Date: 20140209
  Transmission Date: 20141002
  Serious: Yes (Hospitalization, Other)
  Sender: FDA-Public Use
  Company Number: US-PFIZER INC-2012333518

PATIENT
  Age: 73 Year
  Sex: Female
  Weight: 104.31 kg

DRUGS (3)
  1. PRISTIQ [Suspect]
     Dosage: 50 MG, 1X/DAY
  2. PROTONIX [Suspect]
     Dosage: 40 MG, 1X/DAY
  3. LIPITOR [Suspect]
     Dosage: 20 MG, 1X/DAY

REACTIONS (4)
  - Cerebrovascular accident [Unknown]
  - Convulsion [Unknown]
  - Convulsion [Unknown]
  - Cerebrovascular accident [Unknown]
